FAERS Safety Report 6678352-1 (Version None)
Quarter: 2010Q2

REPORT INFORMATION
  Report Type: 
  Country: None (occurrence: None)
  Receive Date: 20100413
  Receipt Date: 20100401
  Transmission Date: 20101027
  Serious: No
  Sender: FDA-Public Use
  Company Number: US-BIOGENIDEC-2010BI011216

PATIENT
  Age: 32 Year
  Sex: Female

DRUGS (2)
  1. TYSABRI [Suspect]
     Indication: MULTIPLE SCLEROSIS
     Route: 042
     Dates: start: 20070611, end: 20080508
  2. TYSABRI [Suspect]
     Route: 042
     Dates: start: 20090205

REACTIONS (5)
  - BACK INJURY [None]
  - FALL [None]
  - JOINT INJURY [None]
  - LIMB INJURY [None]
  - MULTIPLE SCLEROSIS [None]
